FAERS Safety Report 8410878-2 (Version None)
Quarter: 2012Q2

REPORT INFORMATION
  Report Type: 
  Country: None (occurrence: None)
  Receive Date: 20120529
  Receipt Date: 20060309
  Transmission Date: 20120825
  Serious: Yes (Death, Hospitalization, Other)
  Sender: FDA-Public Use
  Company Number: 15691-USA-06-0768

PATIENT
  Age: 54 Year
  Sex: Male

DRUGS (9)
  1. TOLVAPTAN (TOLVAPTAN(V4.1)) 30MG [Suspect]
     Indication: CARDIAC FAILURE CONGESTIVE
     Dosage: 30 MG, QD, ORAL
     Route: 048
     Dates: start: 20051121, end: 20060307
  2. DEMADEX [Concomitant]
  3. LANOXIN [Concomitant]
  4. ASPIRIN [Concomitant]
  5. MAGNESIUM OXIDE (MAGNESIUM OXIDE) [Concomitant]
  6. COREG [Concomitant]
  7. GLIPIZIDE [Concomitant]
  8. LISINOPRIL [Concomitant]
  9. PROTONIX [Concomitant]

REACTIONS (19)
  - FLUID OVERLOAD [None]
  - PNEUMOTHORAX [None]
  - HYPOTENSION [None]
  - RENAL FAILURE CHRONIC [None]
  - MEDIASTINAL HAEMATOMA [None]
  - CONDITION AGGRAVATED [None]
  - VENTRICULAR FIBRILLATION [None]
  - STAPHYLOCOCCUS TEST POSITIVE [None]
  - CARDIAC FAILURE CONGESTIVE [None]
  - VENTRICULAR ASYSTOLE [None]
  - PULMONARY OEDEMA [None]
  - VENTRICULAR ARRHYTHMIA [None]
  - ATRIAL FIBRILLATION [None]
  - BLOOD PRESSURE SYSTOLIC INCREASED [None]
  - CARDIOMYOPATHY [None]
  - RENAL FAILURE ACUTE [None]
  - LUNG DISORDER [None]
  - SEPSIS [None]
  - RESPIRATORY FAILURE [None]
